FAERS Safety Report 5237258-5 (Version None)
Quarter: 2007Q1

REPORT INFORMATION
  Report Type: 
  Country: None (occurrence: None)
  Receive Date: 20070213
  Receipt Date: 20070206
  Transmission Date: 20070707
  Serious: Yes (Hospitalization)
  Sender: FDA-Public Use
  Company Number: US-ROCHE-481602

PATIENT
  Age: 41 Year
  Sex: Male

DRUGS (3)
  1. CELLCEPT [Suspect]
     Indication: LUPUS NEPHRITIS
     Route: 065
  2. CELLCEPT [Suspect]
     Route: 065
     Dates: start: 20070203
  3. CATAPRES [Suspect]
     Indication: HYPERTENSION
     Route: 065

REACTIONS (4)
  - DIARRHOEA [None]
  - HYPERTENSIVE CRISIS [None]
  - NAUSEA [None]
  - VOMITING [None]
